FAERS Safety Report 5309808-1 (Version None)
Quarter: 2007Q2

REPORT INFORMATION
  Report Type: 
  Country: None (occurrence: None)
  Receive Date: 20070427
  Receipt Date: 20061121
  Transmission Date: 20071010
  Serious: No
  Sender: FDA-Public Use
  Company Number: US-GLAXOSMITHKLINE-A0628326A

PATIENT
  Age: 52 Year
  Sex: Female

DRUGS (3)
  1. ZOFRAN [Suspect]
     Dosage: 8MG AS REQUIRED
     Route: 048
     Dates: start: 20060101
  2. ALOXI [Suspect]
     Indication: OVARIAN CANCER
     Route: 042
     Dates: start: 20061004
  3. STEROID [Concomitant]

REACTIONS (3)
  - CONSTIPATION [None]
  - INTESTINAL FUNCTIONAL DISORDER [None]
  - PAIN [None]
